FAERS Safety Report 13996803 (Version 1)
Quarter: 2017Q3

REPORT INFORMATION
  Report Type: Spontaneous
  Country: US (occurrence: US)
  Receive Date: 20170921
  Receipt Date: 20170921
  Transmission Date: 20171128
  Serious: No
  Sender: FDA-Public Use
  Company Number: US-PFIZER INC-2017407366

PATIENT
  Age: 68 Year
  Sex: Male

DRUGS (4)
  1. HYDROCODONE [Suspect]
     Active Substance: HYDROCODONE
  2. TRAMADOL. [Suspect]
     Active Substance: TRAMADOL
  3. IBUPROFEN. [Suspect]
     Active Substance: IBUPROFEN
  4. TAMSULOSIN HCL [Suspect]
     Active Substance: TAMSULOSIN

REACTIONS (1)
  - Drug ineffective [Unknown]
